FAERS Safety Report 21860515 (Version 2)
Quarter: 2023Q2

REPORT INFORMATION
  Report Type: Spontaneous
  Country: US (occurrence: US)
  Receive Date: 20230113
  Receipt Date: 20230405
  Transmission Date: 20230721
  Serious: Yes (Hospitalization, Other)
  Sender: FDA-Public Use
  Company Number: US-BRISTOL-MYERS SQUIBB COMPANY-2023-004969

PATIENT
  Age: 71 Year
  Sex: Male
  Weight: 51.6 kg

DRUGS (1)
  1. IDHIFA [Suspect]
     Active Substance: ENASIDENIB MESYLATE
     Indication: Acute myeloid leukaemia
     Dosage: 100MG ONCE DAILY
     Route: 048
     Dates: start: 20221124

REACTIONS (6)
  - Full blood count decreased [Unknown]
  - Laryngitis [Unknown]
  - Asthenia [Unknown]
  - Dyspnoea [Unknown]
  - Immunodeficiency [Unknown]
  - Product dose omission issue [Unknown]
